FAERS Safety Report 14843335 (Version 1)
Quarter: 2018Q2

REPORT INFORMATION
  Report Type: Report from Study
  Country: None (occurrence: AE)
  Receive Date: 20180503
  Receipt Date: 20180503
  Transmission Date: 20180711
  Serious: Yes (Hospitalization)
  Sender: FDA-Public Use
  Company Number: AE-ABBVIE-18K-166-2340825-00

PATIENT
  Age: 13 Year
  Sex: Male

DRUGS (1)
  1. HUMIRA [Suspect]
     Active Substance: ADALIMUMAB
     Indication: CROHN^S DISEASE
     Route: 058
     Dates: start: 20170817, end: 20180325

REACTIONS (1)
  - Colectomy [Recovered/Resolved]

NARRATIVE: CASE EVENT DATE: 20180409
